FAERS Safety Report 14476631 (Version 2)
Quarter: 2018Q3

REPORT INFORMATION
  Report Type: Spontaneous
  Country: US (occurrence: US)
  Receive Date: 20180201
  Receipt Date: 20180725
  Transmission Date: 20181010
  Serious: No
  Sender: FDA-Public Use
  Company Number: US-SA-2017SA244121

PATIENT
  Age: 56 Year
  Sex: Female

DRUGS (4)
  1. PRALUENT [Suspect]
     Active Substance: ALIROCUMAB
     Dosage: 75 MG QOW
     Route: 058
  2. PRALUENT [Suspect]
     Active Substance: ALIROCUMAB
     Indication: BLOOD CHOLESTEROL
     Dosage: 150 MG,QOW
     Route: 058
     Dates: start: 20170809
  3. ALIROCUMAB PREFILLED PEN [Suspect]
     Active Substance: ALIROCUMAB
     Indication: BLOOD CHOLESTEROL
     Dosage: 150 MG, QOW
     Route: 058
     Dates: start: 20170809
  4. ALIROCUMAB PREFILLED PEN [Suspect]
     Active Substance: ALIROCUMAB
     Dosage: 75 MG, QOW
     Route: 058

REACTIONS (13)
  - Nausea [Unknown]
  - Weight increased [Unknown]
  - Influenza like illness [Unknown]
  - Rash [Unknown]
  - Abdominal discomfort [Unknown]
  - Urticaria [Unknown]
  - Contusion [Unknown]
  - Memory impairment [Unknown]
  - Hypersensitivity [Unknown]
  - Increased appetite [Unknown]
  - Pain [Unknown]
  - Malaise [Unknown]
  - Pruritus [Unknown]
